FAERS Safety Report 10450621 (Version 2)
Quarter: 2014Q3

REPORT INFORMATION
  Report Type: Report from Study
  Country: CA (occurrence: CA)
  Receive Date: 20140912
  Receipt Date: 20140912
  Transmission Date: 20150326
  Serious: Yes (Other)
  Sender: FDA-Public Use
  Company Number: CA-BRISTOL-MYERS SQUIBB COMPANY-20972386

PATIENT
  Age: 56 Year
  Sex: Male

DRUGS (9)
  1. COVERSYL [Concomitant]
     Active Substance: PERINDOPRIL
  2. METHOTREXATE [Concomitant]
     Active Substance: METHOTREXATE
  3. PLAVIX [Concomitant]
     Active Substance: CLOPIDOGREL BISULFATE
  4. ORENCIA [Suspect]
     Active Substance: ABATACEPT
     Indication: RHEUMATOID ARTHRITIS
     Dosage: INT:16MAY2014
     Route: 042
     Dates: start: 20071219
  5. PREDNISONE. [Concomitant]
     Active Substance: PREDNISONE
  6. BISOPROLOL [Concomitant]
     Active Substance: BISOPROLOL
  7. ROCALTROL [Concomitant]
     Active Substance: CALCITRIOL
  8. ASAPHEN [Concomitant]
     Active Substance: ASPIRIN
  9. VOLTAREN [Concomitant]
     Active Substance: DICLOFENAC SODIUM

REACTIONS (3)
  - Wound secretion [Recovered/Resolved]
  - Impaired healing [Recovering/Resolving]
  - Foot deformity [Unknown]
